FAERS Safety Report 16005620 (Version 2)
Quarter: 2019Q1

REPORT INFORMATION
  Report Type: Spontaneous
  Country: JP (occurrence: JP)
  Receive Date: 20190226
  Receipt Date: 20190325
  Transmission Date: 20190418
  Serious: Yes (Hospitalization, Disabling)
  Sender: FDA-Public Use
  Company Number: JP-ELI_LILLY_AND_COMPANY-JP201807012619

PATIENT
  Sex: Male
  Weight: 49 kg

DRUGS (8)
  1. CYRAMZA [Suspect]
     Active Substance: RAMUCIRUMAB
     Indication: GASTRIC CANCER STAGE IV
     Dosage: 390 MG, CYCLICAL
     Route: 041
     Dates: start: 20160114, end: 20160413
  2. DEXAMETHASONE. [Concomitant]
     Active Substance: DEXAMETHASONE
     Indication: PROPHYLAXIS
     Dosage: 66 MG, UNKNOWN
     Route: 041
     Dates: start: 20160114
  3. CYRAMZA [Suspect]
     Active Substance: RAMUCIRUMAB
     Dosage: 390 MG, CYCLICAL
     Route: 041
     Dates: start: 20160511, end: 20160511
  4. PACLITAXEL. [Concomitant]
     Active Substance: PACLITAXEL
     Indication: GASTRIC CANCER STAGE IV
     Dosage: 120 MG, CYCLICAL
     Route: 041
     Dates: start: 20160114, end: 20160413
  5. PACLITAXEL. [Concomitant]
     Active Substance: PACLITAXEL
     Dosage: 120 MG, CYCLICAL
     Route: 041
     Dates: start: 20160511, end: 20160511
  6. DEXCHLORPHENIRAMINE MALEATE. [Concomitant]
     Active Substance: DEXCHLORPHENIRAMINE MALEATE
     Indication: PROPHYLAXIS
     Dosage: 10 MG, UNKNOWN
     Route: 041
     Dates: start: 20160114
  7. GRANISETRON [Concomitant]
     Active Substance: GRANISETRON
     Indication: PROPHYLAXIS
     Dosage: 3 MG, UNKNOWN
     Route: 041
     Dates: start: 20160114
  8. FAMOTIDINE. [Concomitant]
     Active Substance: FAMOTIDINE
     Indication: PROPHYLAXIS
     Dosage: 20 MG, UNKNOWN
     Route: 041
     Dates: start: 20160114

REACTIONS (1)
  - Interstitial lung disease [Recovering/Resolving]

NARRATIVE: CASE EVENT DATE: 20160413
